FAERS Safety Report 21049150 (Version 2)
Quarter: 2022Q3

REPORT INFORMATION
  Report Type: Spontaneous
  Country: RU (occurrence: RU)
  Receive Date: 20220706
  Receipt Date: 20220710
  Transmission Date: 20221027
  Serious: Yes (Hospitalization)
  Sender: FDA-Public Use
  Company Number: RU-BIOGEN-2022BI01134893

PATIENT
  Sex: Female
  Weight: 59 kg

DRUGS (1)
  1. PLEGRIDY [Suspect]
     Active Substance: PEGINTERFERON BETA-1A
     Indication: Relapsing-remitting multiple sclerosis
     Route: 050
     Dates: start: 202109, end: 20220529

REACTIONS (2)
  - Immune thrombocytopenia [Recovered/Resolved]
  - Haemorrhagic vasculitis [Recovered/Resolved]

NARRATIVE: CASE EVENT DATE: 20220501
